FAERS Safety Report 9061921 (Version 1)
Quarter: 2013Q1

REPORT INFORMATION
  Report Type: Spontaneous
  Country: GB (occurrence: None)
  Receive Date: 20130118
  Receipt Date: 20130118
  Transmission Date: 20140127
  Serious: Yes (Hospitalization)
  Sender: FDA-Public Use
  Company Number: AUR-APL-2013-00489

PATIENT
  Age: 70 Year
  Sex: Male
  Weight: 86 kg

DRUGS (5)
  1. SIMVASTATIN (SIMVASTATIN) [Suspect]
     Indication: CARDIOVASCULAR EVENT PROPHYLAXIS
     Route: 048
     Dates: start: 20050822, end: 20090905
  2. BISOPROLOL [Concomitant]
  3. PERINDOPRIL (PERINDOPRIL) [Concomitant]
  4. TERAZOSIN(TERAZOSIN) [Concomitant]
  5. WARFARIN(WARFARIN) [Concomitant]

REACTIONS (3)
  - Depressed mood [None]
  - Depression [None]
  - Anhedonia [None]
